FAERS Safety Report 5409544-7 (Version None)
Quarter: 2007Q3

REPORT INFORMATION
  Report Type: 
  Country: None (occurrence: None)
  Receive Date: 20070809
  Receipt Date: 20070731
  Transmission Date: 20080115
  Serious: Yes (Other)
  Sender: FDA-Public Use
  Company Number: CN-JNJFOC-20070800431

PATIENT
  Sex: Female

DRUGS (2)
  1. DAKTARIN [Suspect]
     Route: 065
  2. DAKTARIN [Suspect]
     Indication: TINEA PEDIS
     Route: 065

REACTIONS (2)
  - APPLICATION SITE BLEEDING [None]
  - APPLICATION SITE PUSTULES [None]
